FAERS Safety Report 6445874-8 (Version None)
Quarter: 2009Q4

REPORT INFORMATION
  Report Type: 
  Country: None (occurrence: None)
  Receive Date: 20091119
  Receipt Date: 20091105
  Transmission Date: 20100525
  Serious: Yes (Hospitalization, Other)
  Sender: FDA-Public Use
  Company Number: GB-SOLVAY-00307035243

PATIENT
  Age: 13 Year
  Sex: Female

DRUGS (7)
  1. FLUCLOXACILLIN [Concomitant]
     Indication: PROPHYLAXIS
     Dosage: DAILY DOSE: 2000 MILLIGRAM(S)
     Route: 048
     Dates: start: 19940101
  2. CREON [Suspect]
     Indication: PANCREATIC INSUFFICIENCY
     Dosage: DAILY DOSE:  UNKNOWN, AS NEEDED, MDU, BASED ON FOOD.
     Route: 048
  3. VITAMIN K TAB [Concomitant]
     Indication: MEDICAL DIET
     Dosage: DAILY DOSE: 10 MILLIGRAM(S)
     Route: 048
  4. VITAMIN E [Concomitant]
     Indication: MEDICAL DIET
     Dosage: DAILY DOSE: 75 INTERNATIONAL UNIT(S)
     Route: 048
     Dates: start: 19950101
  5. KETOVITE TABLETS [Concomitant]
     Indication: MEDICAL DIET
     Dosage: DAILY DOSE: 3 DOSAGE FORM
     Route: 048
     Dates: start: 19950101
  6. VITAMIN A+D [Concomitant]
     Indication: MEDICAL DIET
     Dosage: DAILY DOSE: 2 DOSAGE FORM
     Route: 048
  7. URSO 250 [Concomitant]
     Indication: LIVER DISORDER
     Dosage: DAILY DOSE: 600 MILLIGRAM(S)
     Route: 048

REACTIONS (1)
  - DISTAL INTESTINAL OBSTRUCTION SYNDROME [None]
